FAERS Safety Report 10393160 (Version 1)
Quarter: 2014Q3

REPORT INFORMATION
  Report Type: Report from Study
  Country: MX (occurrence: MX)
  Receive Date: 20140819
  Receipt Date: 20140819
  Transmission Date: 20150326
  Serious: Yes (Death, Other)
  Sender: FDA-Public Use
  Company Number: PHHY2014MX102987

PATIENT
  Sex: Female

DRUGS (1)
  1. CO-DIOVAN [Suspect]
     Active Substance: HYDROCHLOROTHIAZIDE\VALSARTAN
     Indication: HYPERTENSION
     Dosage: UNK (160/12.5MG), UNK
     Route: 048
     Dates: start: 201110

REACTIONS (4)
  - Diabetic cardiomyopathy [Fatal]
  - Cerebrovascular accident [Fatal]
  - Diabetes mellitus [Unknown]
  - Gastrooesophageal reflux disease [Unknown]
